FAERS Safety Report 4401038-0 (Version None)
Quarter: 2004Q3

REPORT INFORMATION
  Report Type: 
  Country: None (occurrence: None)
  Receive Date: 20040907
  Receipt Date: 20031001
  Transmission Date: 20050211
  Serious: No
  Sender: FDA-Public Use
  Company Number: US-BRISTOL-MYERS SQUIBB COMPANY-12399622

PATIENT
  Age: 69 Year
  Sex: Female
  Weight: 102 kg

DRUGS (4)
  1. COUMADIN [Suspect]
     Indication: HEART VALVE REPLACEMENT
     Dosage: DOSE:  ONE 5 MG TABLET 3 TIMES A WEEK, ALTERNATING WITH ? TABLET FOUR TIMES A WEEK.
     Route: 048
     Dates: start: 19920101
  2. XANAX [Concomitant]
  3. BENTYL [Concomitant]
  4. LEVOTHYROID [Concomitant]

REACTIONS (2)
  - ALOPECIA [None]
  - INTERNATIONAL NORMALISED RATIO INCREASED [None]
